FAERS Safety Report 14805776 (Version 2)
Quarter: 2018Q2

REPORT INFORMATION
  Report Type: Report from Study
  Country: US (occurrence: US)
  Receive Date: 20180425
  Receipt Date: 20180627
  Transmission Date: 20180711
  Serious: No
  Sender: FDA-Public Use
  Company Number: US-BAYER-2018-077791

PATIENT
  Age: 56 Year
  Sex: Female
  Weight: 146.5 kg

DRUGS (5)
  1. OXYGEN. [Concomitant]
     Active Substance: OXYGEN
     Dosage: UNK
  2. AMBRISENTAN [Suspect]
     Active Substance: AMBRISENTAN
     Indication: PRODUCT USED FOR UNKNOWN INDICATION
     Dosage: 5 MG, QD
     Dates: start: 201709
  3. REMODULIN [Suspect]
     Active Substance: TREPROSTINIL
     Indication: PULMONARY ARTERIAL HYPERTENSION
     Dosage: UNK
  4. REMODULIN [Suspect]
     Active Substance: TREPROSTINIL
     Indication: PULMONARY ARTERIAL HYPERTENSION
     Dosage: 0.06 ?G/KG, UNK
     Route: 042
     Dates: start: 20170223
  5. ADEMPAS [Suspect]
     Active Substance: RIOCIGUAT
     Indication: PRODUCT USED FOR UNKNOWN INDICATION
     Dosage: UNK

REACTIONS (11)
  - Abdominal discomfort [Not Recovered/Not Resolved]
  - Malaise [None]
  - Nasal congestion [Not Recovered/Not Resolved]
  - Pollakiuria [Not Recovered/Not Resolved]
  - Headache [Not Recovered/Not Resolved]
  - Pain in extremity [Not Recovered/Not Resolved]
  - Dyspepsia [Not Recovered/Not Resolved]
  - Lymphoedema [Not Recovered/Not Resolved]
  - Dizziness postural [Recovered/Resolved]
  - Pain in jaw [Not Recovered/Not Resolved]
  - Diarrhoea [Not Recovered/Not Resolved]
